FAERS Safety Report 9177740 (Version 3)
Quarter: 2013Q2

REPORT INFORMATION
  Report Type: Spontaneous
  Country: US (occurrence: US)
  Receive Date: 20121009
  Receipt Date: 20130522
  Transmission Date: 20140414
  Serious: Yes (Hospitalization, Other)
  Sender: FDA-Public Use
  Company Number: US-RB-045197-12

PATIENT
  Age: 0 Year
  Sex: Male

DRUGS (3)
  1. SUBOXONE FILM [Suspect]
     Indication: DRUG DEPENDENCE
     Dosage: SUBOXONE FILM, 1 1/2 STRIPS DAILY
     Route: 064
     Dates: start: 201109, end: 201203
  2. GENERIC BUPRENORPHINE [Suspect]
     Indication: DRUG DEPENDENCE
     Dosage: 1 1/2 TABLETS DAILY
     Route: 064
     Dates: start: 201203, end: 201206
  3. CELEXA [Suspect]
     Indication: DEPRESSION
     Route: 064
     Dates: start: 201203, end: 201206

REACTIONS (3)
  - Foetal exposure during pregnancy [Recovered/Resolved]
  - Low birth weight baby [Recovered/Resolved]
  - Drug withdrawal syndrome neonatal [Recovered/Resolved]
